FAERS Safety Report 17912010 (Version 2)
Quarter: 2020Q2

REPORT INFORMATION
  Report Type: Report from Study
  Country: US (occurrence: US)
  Receive Date: 20200618
  Receipt Date: 20200624
  Transmission Date: 20200714
  Serious: Yes (Hospitalization, Other)
  Sender: FDA-Public Use
  Company Number: US-ALEXION PHARMACEUTICALS INC.-A202008560

PATIENT
  Sex: Male

DRUGS (1)
  1. SOLIRIS [Suspect]
     Active Substance: ECULIZUMAB
     Indication: MYASTHENIA GRAVIS
     Dosage: UNK
     Route: 065

REACTIONS (11)
  - Amnesia [Recovering/Resolving]
  - Pain [Unknown]
  - Feeling abnormal [Unknown]
  - Malaise [Unknown]
  - Pyrexia [Unknown]
  - Fatigue [Unknown]
  - Fall [Recovering/Resolving]
  - Loss of consciousness [Recovering/Resolving]
  - Neisseria infection [Not Recovered/Not Resolved]
  - Sepsis [Not Recovered/Not Resolved]
  - Bacteraemia [Unknown]
